FAERS Safety Report 25138815 (Version 2)
Quarter: 2025Q2

REPORT INFORMATION
  Report Type: Spontaneous
  Country: DE (occurrence: DE)
  Receive Date: 20250331
  Receipt Date: 20250402
  Transmission Date: 20250717
  Serious: Yes (Hospitalization, Disabling, Other)
  Sender: ALEXION PHARMACEUTICALS
  Company Number: DE-DCGMA-25204806

PATIENT
  Age: 70 Year

DRUGS (2)
  1. ROSUVASTATIN [Suspect]
     Active Substance: ROSUVASTATIN
     Indication: Hypertension
     Dosage: 10 MILLIGRAM, 1/DAY
  2. CANDESARTAN CILEXETIL\HYDROCHLOROTHIAZIDE [Suspect]
     Active Substance: CANDESARTAN CILEXETIL\HYDROCHLOROTHIAZIDE
     Indication: Hypertension

REACTIONS (3)
  - Femoral neck fracture [Unknown]
  - Dizziness [Unknown]
  - Fall [Unknown]
